FAERS Safety Report 11548566 (Version 1)
Quarter: 2015Q3

REPORT INFORMATION
  Report Type: Spontaneous
  Country: CH (occurrence: ES)
  Receive Date: 20150924
  Receipt Date: 20150924
  Transmission Date: 20151125
  Serious: Yes (Other)
  Sender: FDA-Public Use
  Company Number: CH-LPDUSPRD-20150745

PATIENT
  Age: 37 Year
  Sex: Female
  Weight: 54 kg

DRUGS (14)
  1. CALCIUM [Concomitant]
     Active Substance: CALCIUM
     Dosage: DOSE NOT PROVIDED
     Route: 065
  2. FERINJECT [Suspect]
     Active Substance: FERRIC CARBOXYMALTOSE
     Dosage: 1000 MG(1D/1WK FOR 5 WKS)
     Route: 041
     Dates: start: 2015
  3. ORFIDAL [Concomitant]
     Active Substance: LORAZEPAM
     Dosage: HALF AT DAY
     Route: 065
  4. METAMIZOLE [Concomitant]
     Active Substance: METAMIZOLE
     Dosage: DOSE NOT PROVIDED
     Route: 065
  5. SANOSTATIN [Concomitant]
     Dosage: DOSE NOT PROVIDED
     Route: 065
  6. ZINC [Concomitant]
     Active Substance: ZINC\ZINC CHLORIDE
     Dosage: DOSE NOT PROVIDED
     Route: 065
  7. SERTRALINE [Concomitant]
     Active Substance: SERTRALINE HYDROCHLORIDE
     Dosage: DOSE NOT PROVIDED
     Route: 065
  8. METOCLOPRAMIDE. [Concomitant]
     Active Substance: METOCLOPRAMIDE
     Dosage: DOSE NOT PROVIDED
     Route: 065
  9. OPTIVITE B12 [Concomitant]
     Dosage: DOSE NOT PROVIDED
     Route: 065
  10. ANAFRANIL [Concomitant]
     Active Substance: CLOMIPRAMINE HYDROCHLORIDE
     Dosage: DOSE NOT PROVIDED
     Route: 065
  11. ERGOCALCIFEROL. [Concomitant]
     Active Substance: ERGOCALCIFEROL
     Dosage: DOSE NOT PROVIDED
     Route: 065
  12. VENOFER [Suspect]
     Active Substance: IRON SUCROSE
     Dosage: 200 MG 1 DOSE
     Route: 065
     Dates: start: 2015
  13. PANTOPRAZOLE [Concomitant]
     Active Substance: PANTOPRAZOLE SODIUM
     Dosage: DOSE NOT PROVIDED
     Route: 065
  14. RIFAXIMIN [Concomitant]
     Active Substance: RIFAXIMIN
     Dosage: DOSE NOT PROVIDED
     Route: 065

REACTIONS (6)
  - Transaminases increased [Unknown]
  - Vision blurred [Unknown]
  - Serum ferritin increased [Unknown]
  - Arthralgia [Unknown]
  - Abasia [Unknown]
  - Iron overload [Unknown]

NARRATIVE: CASE EVENT DATE: 2015
